FAERS Safety Report 23595003 (Version 1)
Quarter: 2024Q1

REPORT INFORMATION
  Report Type: Spontaneous
  Country: US (occurrence: US)
  Receive Date: 20240305
  Receipt Date: 20240305
  Transmission Date: 20240410
  Serious: No
  Sender: FDA-Public Use
  Company Number: US-BRISTOL-MYERS SQUIBB COMPANY-2024-035306

PATIENT
  Age: 93 Year
  Sex: Female

DRUGS (1)
  1. REVLIMID [Suspect]
     Active Substance: LENALIDOMIDE
     Indication: Diffuse large B-cell lymphoma
     Dosage: DOSE : 15 MG; FREQUENCY : ONE DAILY FOR 21 DAYS OF A 28-DAY CYCLE
     Route: 048
     Dates: start: 20220302

REACTIONS (2)
  - Platelet count decreased [Unknown]
  - Off label use [Unknown]
